FAERS Safety Report 17482235 (Version 2)
Quarter: 2020Q2

REPORT INFORMATION
  Report Type: Spontaneous
  Country: US (occurrence: US)
  Receive Date: 20200302
  Receipt Date: 20200417
  Transmission Date: 20200713
  Serious: Yes (Hospitalization, Other)
  Sender: FDA-Public Use
  Company Number: US-DRREDDYS-USA/USA/20/0120242

PATIENT
  Age: 37 Year
  Sex: Male

DRUGS (11)
  1. TERBUTALINE SULFATE. [Suspect]
     Active Substance: TERBUTALINE SULFATE
     Indication: STATUS ASTHMATICUS
     Route: 065
  2. PROPOFOL INJECTABLE EMULSION [Suspect]
     Active Substance: PROPOFOL
     Indication: SEDATION
     Route: 065
  3. MAGNESIUM [Suspect]
     Active Substance: MAGNESIUM
     Indication: STATUS ASTHMATICUS
     Route: 042
  4. THEOPHYLLINE [Suspect]
     Active Substance: THEOPHYLLINE ANHYDROUS
     Indication: RESPIRATORY FAILURE
  5. KETAMINE [Suspect]
     Active Substance: KETAMINE
     Indication: SEDATION
     Route: 065
  6. TERBUTALINE SULFATE. [Suspect]
     Active Substance: TERBUTALINE SULFATE
     Indication: RESPIRATORY FAILURE
  7. MAGNESIUM [Suspect]
     Active Substance: MAGNESIUM
     Indication: RESPIRATORY FAILURE
  8. HELIOX [Suspect]
     Active Substance: OXYGEN
     Indication: STATUS ASTHMATICUS
     Route: 065
  9. HELIOX [Suspect]
     Active Substance: OXYGEN
     Indication: RESPIRATORY FAILURE
  10. THEOPHYLLINE [Suspect]
     Active Substance: THEOPHYLLINE ANHYDROUS
     Indication: STATUS ASTHMATICUS
     Route: 065
  11. KETAMINE [Suspect]
     Active Substance: KETAMINE
     Indication: RESPIRATORY FAILURE

REACTIONS (5)
  - Drug ineffective [Unknown]
  - Hypoxia [Unknown]
  - Respiratory acidosis [Unknown]
  - Hypercapnia [Unknown]
  - Airway peak pressure increased [Recovering/Resolving]
